FAERS Safety Report 4950718-7 (Version None)
Quarter: 2006Q1

REPORT INFORMATION
  Report Type: 
  Country: None (occurrence: None)
  Receive Date: 20060322
  Receipt Date: 20060316
  Transmission Date: 20060701
  Serious: Yes (Hospitalization)
  Sender: FDA-Public Use
  Company Number: JP-MERCK-0603USA02850

PATIENT
  Age: 17 Year
  Sex: Female
  Weight: 30 kg

DRUGS (4)
  1. PREDNISOLONE [Concomitant]
     Indication: SYSTEMIC LUPUS ERYTHEMATOSUS
     Route: 065
     Dates: start: 20010101, end: 20020101
  2. PREDNISOLONE [Concomitant]
     Route: 065
     Dates: start: 20020101
  3. PEPCID [Suspect]
     Route: 065
  4. ESTROGENS (UNSPECIFIED) [Concomitant]
     Route: 065
     Dates: start: 20030101

REACTIONS (14)
  - ABDOMINAL PAIN [None]
  - ABDOMINAL PAIN UPPER [None]
  - APHAGIA [None]
  - CLOSTRIDIUM COLITIS [None]
  - CYSTITIS [None]
  - DIARRHOEA [None]
  - DYSPEPSIA [None]
  - FLATULENCE [None]
  - GASTRITIS [None]
  - GASTROINTESTINAL HYPOMOTILITY [None]
  - HYPERTROPHY [None]
  - IMPAIRED GASTRIC EMPTYING [None]
  - REFLUX OESOPHAGITIS [None]
  - VOMITING [None]
